FAERS Safety Report 4707913-1 (Version None)
Quarter: 2005Q3

REPORT INFORMATION
  Report Type: 
  Country: None (occurrence: None)
  Receive Date: 20050707
  Receipt Date: 20050626
  Transmission Date: 20060218
  Serious: Yes (Hospitalization)
  Sender: FDA-Public Use
  Company Number: US-KINGPHARMUSA00001-K200500907

PATIENT
  Age: 32 Year
  Sex: Female
  Weight: 48 kg

DRUGS (2)
  1. SONATA [Suspect]
     Indication: INSOMNIA
     Dosage: ONE TABLET
     Dates: start: 20050101, end: 20050101
  2. ALPRAZOLAM [Concomitant]
     Indication: ANXIETY
     Dosage: .25 MG, TID
     Route: 048
     Dates: start: 20050101

REACTIONS (2)
  - SELF INJURIOUS BEHAVIOUR [None]
  - SUICIDE ATTEMPT [None]
